FAERS Safety Report 5272940-5 (Version None)
Quarter: 2007Q1

REPORT INFORMATION
  Report Type: 
  Country: None (occurrence: None)
  Receive Date: 20070322
  Receipt Date: 20070312
  Transmission Date: 20070707
  Serious: Yes (Death)
  Sender: FDA-Public Use
  Company Number: 2005GB00909

PATIENT
  Age: 77 Year
  Sex: Male

DRUGS (22)
  1. SYMBICORT [Suspect]
     Dosage: 200/6 MCG 1-2 PUFFS BID
     Route: 055
  2. COMBIVENT [Suspect]
     Indication: CHRONIC OBSTRUCTIVE PULMONARY DISEASE
     Dosage: METERED AEROSOL INHALER
     Route: 055
     Dates: start: 20030617, end: 20040513
  3. SPIRIVA [Suspect]
     Indication: CHRONIC OBSTRUCTIVE PULMONARY DISEASE
     Dosage: INHALATION POWDER, HARD CAPSULE
     Route: 055
     Dates: start: 20030617
  4. SALBUTAMOL [Suspect]
     Dosage: 100 MCG BD PRN
     Route: 055
  5. ASPIRIN [Suspect]
     Route: 065
  6. ATORVASTATIN CALCIUM [Suspect]
     Route: 065
  7. BECLOMETHASONE DIPROPIONATE [Suspect]
     Dosage: 50 MCG, 2 BD
     Route: 055
  8. FRUMIL [Suspect]
     Route: 065
  9. DEXAMETHASONE [Suspect]
     Route: 065
  10. DILTIAZEM [Suspect]
     Route: 065
  11. DOSULEPIN [Suspect]
     Route: 065
  12. FUROSEMIDE [Suspect]
     Route: 065
  13. GAVISCON [Suspect]
     Route: 065
  14. LACTULOSE [Suspect]
     Dosage: 3.35 G/5 ML
     Route: 065
  15. LANSOPRAZOLE [Suspect]
     Route: 065
  16. METOCLOPRAMIDE [Suspect]
     Route: 065
  17. NITROLINGUAL [Suspect]
     Route: 065
  18. NOZINAN [Suspect]
     Route: 065
  19. OXYCODONE HCL [Suspect]
     Route: 065
  20. OXYGEN [Suspect]
     Route: 055
  21. SPIRONOLACTONE [Suspect]
     Route: 065
  22. TEMAZEPAM [Suspect]
     Dosage: 10 MG 1-2 NOCTE
     Route: 065

REACTIONS (1)
  - MESOTHELIOMA [None]
